FAERS Safety Report 15533759 (Version 1)
Quarter: 2018Q4

REPORT INFORMATION
  Report Type: Spontaneous
  Country: CZ (occurrence: CZ)
  Receive Date: 20181019
  Receipt Date: 20181019
  Transmission Date: 20190205
  Serious: Yes (Hospitalization, Other)
  Sender: FDA-Public Use
  Company Number: CZ-GILEAD-2018-0369507

PATIENT
  Age: 50 Year
  Sex: Male

DRUGS (3)
  1. ATRIPLA [Suspect]
     Active Substance: EFAVIRENZ\EMTRICITABINE\TENOFOVIR DISOPROXIL FUMARATE
     Indication: HIV INFECTION
     Dosage: UNK
     Route: 065
     Dates: start: 201107, end: 201306
  2. TRUVADA [Suspect]
     Active Substance: EMTRICITABINE\TENOFOVIR DISOPROXIL FUMARATE
     Indication: HIV INFECTION
     Dosage: UNK
     Route: 065
     Dates: start: 200805, end: 201105
  3. FOSAMPRENAVIR W/RITONAVIR [Concomitant]
     Active Substance: FOSAMPRENAVIR\RITONAVIR

REACTIONS (14)
  - Diarrhoea [Unknown]
  - Syphilis [Unknown]
  - Syncope [Unknown]
  - Injury [Unknown]
  - Drug resistance [Unknown]
  - Drug ineffective [Recovered/Resolved]
  - Respiratory tract infection [Unknown]
  - Epididymitis [Unknown]
  - Cachexia [Unknown]
  - Polyneuropathy [Unknown]
  - Treatment noncompliance [Recovered/Resolved]
  - Herpes zoster [Unknown]
  - Hepatitis C [Unknown]
  - Anogenital warts [Unknown]
